FAERS Safety Report 18114359 (Version 3)
Quarter: 2021Q1

REPORT INFORMATION
  Report Type: Report from Study
  Country: MX (occurrence: MX)
  Receive Date: 20200805
  Receipt Date: 20210107
  Transmission Date: 20210419
  Serious: Yes (Other)
  Sender: FDA-Public Use
  Company Number: NVSC2020MX092312

PATIENT
  Age: 52 Year
  Sex: Female
  Weight: 70 kg

DRUGS (2)
  1. GALVUS MET [Suspect]
     Active Substance: METFORMIN HYDROCHLORIDE\VILDAGLIPTIN
     Indication: DIABETES MELLITUS
     Dosage: UNK
     Route: 048
  2. GALVUS MET [Suspect]
     Active Substance: METFORMIN HYDROCHLORIDE\VILDAGLIPTIN
     Indication: HYPERTENSION
     Dosage: 1 DF, BID (50/ 850 MG, STARTED APPROXIMATELY 3 YEARS AGO)
     Route: 048

REACTIONS (16)
  - Tension [Unknown]
  - Ear disorder [Unknown]
  - COVID-19 [Unknown]
  - Device failure [Not Recovered/Not Resolved]
  - Stress [Unknown]
  - Gingival pain [Unknown]
  - Aphasia [Unknown]
  - Malaise [Unknown]
  - Illness [Recovering/Resolving]
  - Headache [Unknown]
  - Noninfective gingivitis [Recovering/Resolving]
  - Blood glucose increased [Recovering/Resolving]
  - Oropharyngeal discomfort [Unknown]
  - Chest pain [Unknown]
  - Oropharyngeal pain [Unknown]
  - Sense of oppression [Unknown]

NARRATIVE: CASE EVENT DATE: 20200327
